FAERS Safety Report 9731103 (Version 2)
Quarter: 2013Q4

REPORT INFORMATION
  Report Type: Spontaneous
  Country: US (occurrence: US)
  Receive Date: 20131205
  Receipt Date: 20131210
  Transmission Date: 20140711
  Serious: Yes (Other)
  Sender: FDA-Public Use
  Company Number: US-BEH-2013038991

PATIENT
  Sex: Female
  Weight: 102 kg

DRUGS (19)
  1. HIZENTRA [Suspect]
     Indication: IMMUNODEFICIENCY COMMON VARIABLE
     Dosage: 3-4 SITES OVER 1-2 HOURS, TOTAL HIZENTRA DOSE 10 G ONCE A WEEK
     Route: 058
  2. HIZENTRA [Suspect]
     Dosage: 3-4 SITES OVER 1-2 HOURS, TOTAL HIZENTRA DOSE 10 G ONCE A WEEK
     Route: 058
  3. CELEBREX [Concomitant]
  4. DULERA [Concomitant]
  5. TRAMADOL [Concomitant]
  6. GABAPENTIN [Concomitant]
  7. DICYCLOMINE [Concomitant]
  8. FLUCONAZOLE [Concomitant]
  9. VITAMIN D [Concomitant]
  10. TIZANIDINE [Concomitant]
  11. BENZONATATE [Concomitant]
  12. MAGNESIUM [Concomitant]
  13. LIDOCAINE [Concomitant]
  14. PREVACID [Concomitant]
  15. PROAIR [Concomitant]
  16. DUONEB [Concomitant]
  17. NYSTATIN [Concomitant]
  18. DIPHENHYDRAMINE [Concomitant]
  19. EPIPEN [Concomitant]

REACTIONS (6)
  - Lung infection [Unknown]
  - Contusion [Unknown]
  - Pain [Unknown]
  - Influenza like illness [Recovered/Resolved]
  - Pain [Recovered/Resolved]
  - Swelling [Unknown]
